FAERS Safety Report 5314052-8 (Version None)
Quarter: 2007Q2

REPORT INFORMATION
  Report Type: 
  Country: None (occurrence: None)
  Receive Date: 20070501
  Receipt Date: 20070417
  Transmission Date: 20071010
  Serious: Yes (Hospitalization)
  Sender: FDA-Public Use
  Company Number: JP-ROCHE-433909

PATIENT
  Age: 7 Year
  Sex: Male
  Weight: 21 kg

DRUGS (1)
  1. TAMIFLU [Suspect]
     Dosage: FORM: DRY SYRUP 3%.
     Route: 048
     Dates: start: 20060115, end: 20060115

REACTIONS (1)
  - ABNORMAL BEHAVIOUR [None]
